FAERS Safety Report 7688071-0 (Version None)
Quarter: 2011Q3

REPORT INFORMATION
  Report Type: 
  Country: None (occurrence: None)
  Receive Date: 20110817
  Receipt Date: 20110808
  Transmission Date: 20111222
  Serious: Yes (Death, Hospitalization, Other)
  Sender: FDA-Public Use
  Company Number: JP-BRISTOL-MYERS SQUIBB COMPANY-15953052

PATIENT
  Age: 76 Year
  Sex: Female

DRUGS (5)
  1. VINBLASTINE SULFATE [Suspect]
     Indication: BLADDER CANCER
  2. CISPLATIN [Suspect]
     Indication: BLADDER CANCER
  3. METHOTREXATE [Suspect]
     Indication: BLADDER CANCER
  4. DOXORUBICIN HCL [Suspect]
     Indication: BLADDER CANCER
  5. GEMCITABINE [Suspect]
     Indication: BLADDER CANCER

REACTIONS (4)
  - INTERSTITIAL LUNG DISEASE [None]
  - FATIGUE [None]
  - GASTROINTESTINAL DISORDER [None]
  - NEOPLASM MALIGNANT [None]
